FAERS Safety Report 6419910-9 (Version None)
Quarter: 2009Q4

REPORT INFORMATION
  Report Type: 
  Country: None (occurrence: None)
  Receive Date: 20091014
  Receipt Date: 20090427
  Transmission Date: 20100525
  Serious: Yes (Life-Threatening, Hospitalization)
  Sender: FDA-Public Use
  Company Number: DE-BFARM-09053112

PATIENT
  Age: 48 Year
  Sex: Female
  Weight: 68 kg

DRUGS (2)
  1. ENALAPRIL MALEATE [Suspect]
     Indication: HYPERTENSION
     Dosage: 10 MG, QD, ORAL
     Route: 048
     Dates: start: 20090325, end: 20090328
  2. METOHEXAL (METOPROLOL TARTRATE) [Concomitant]

REACTIONS (1)
  - ANGIOEDEMA [None]
